FAERS Safety Report 13277128 (Version 1)
Quarter: 2017Q1

REPORT INFORMATION
  Report Type: Spontaneous
  Country: DE (occurrence: DE)
  Receive Date: 20170228
  Receipt Date: 20170228
  Transmission Date: 20170428
  Serious: Yes (Other)
  Sender: FDA-Public Use
  Company Number: DE-PFIZER INC-2011050313

PATIENT
  Age: 37 Year
  Sex: Female

DRUGS (2)
  1. ADRENALINE [Suspect]
     Active Substance: EPINEPHRINE
     Indication: PRURITUS
     Dosage: 1 MG, (1:10,000)
     Route: 042
  2. ADRENALINE [Suspect]
     Active Substance: EPINEPHRINE
     Indication: URTICARIA

REACTIONS (1)
  - Stress cardiomyopathy [Unknown]
